FAERS Safety Report 8058479-2 (Version None)
Quarter: 2012Q1

REPORT INFORMATION
  Report Type: 
  Country: None (occurrence: None)
  Receive Date: 20120120
  Receipt Date: 20120116
  Transmission Date: 20120608
  Serious: Yes (Hospitalization)
  Sender: FDA-Public Use
  Company Number: FR-PFIZER INC-2012011502

PATIENT
  Age: 47 Year
  Sex: Female

DRUGS (7)
  1. LYRICA [Suspect]
     Indication: EPILEPSY
     Dosage: 25 MG, 2X/DAY
     Route: 048
     Dates: start: 20110604
  2. TAXOL [Suspect]
     Indication: LUNG ADENOCARCINOMA STAGE IV
     Dosage: 200 MG/M2
     Route: 042
     Dates: start: 20110712, end: 20110712
  3. PIPERACILLIN/TAZOBACTAM [Suspect]
     Indication: LUNG INFECTION
     Dosage: 12 G/1500 MG DAILY
     Route: 042
     Dates: start: 20110703
  4. NEXIUM [Suspect]
     Dosage: 40 MG, 1X/DAY
     Route: 048
     Dates: start: 20110715
  5. FLUCONAZOLE [Suspect]
     Indication: CANDIDIASIS
     Dosage: 100 MG DAILY
     Route: 042
     Dates: start: 20110725, end: 20110729
  6. CARBOPLATIN [Suspect]
     Indication: LUNG ADENOCARCINOMA STAGE IV
     Dosage: 4.6 MG/M2
     Route: 042
     Dates: start: 20110712
  7. KEPPRA [Suspect]
     Indication: EPILEPSY
     Dosage: 1250 MG DAILY
     Route: 048
     Dates: start: 20110401

REACTIONS (3)
  - NEUTROPENIA [None]
  - THROMBOCYTOPENIA [None]
  - AGRANULOCYTOSIS [None]
